FAERS Safety Report 21146910 (Version 1)
Quarter: 2022Q3

REPORT INFORMATION
  Report Type: Spontaneous
  Country: CA (occurrence: CA)
  Receive Date: 20220729
  Receipt Date: 20220729
  Transmission Date: 20221027
  Serious: Yes (Hospitalization, Other)
  Sender: FDA-Public Use
  Company Number: CA-BAXTER-2022BAX015802

PATIENT
  Sex: Female

DRUGS (2)
  1. CYCLOPHOSPHAMIDE [Suspect]
     Active Substance: CYCLOPHOSPHAMIDE
     Indication: Product used for unknown indication
     Dosage: (DOSAGE FORM: NOT SPECIFIED, INTRAVENOUS (NOT OTHERWISE SPECIFIED)
     Route: 042
  2. BENLYSTA [Suspect]
     Active Substance: BELIMUMAB
     Indication: Lupus nephritis
     Dosage: (DOSAGE FORM: NOT SPECIFIED, INTRAVENOUS (NOT OTHERWISE SPECIFIED))
     Route: 042

REACTIONS (6)
  - Acute generalised exanthematous pustulosis [Recovered/Resolved]
  - Inappropriate schedule of product administration [Recovered/Resolved]
  - Off label use [Recovered/Resolved]
  - Product dose omission issue [Recovered/Resolved]
  - Asthenia [Recovered/Resolved]
  - Infection [Recovered/Resolved]
